FAERS Safety Report 6932889-6 (Version None)
Quarter: 2010Q3

REPORT INFORMATION
  Report Type: 
  Country: None (occurrence: None)
  Receive Date: 20100819
  Receipt Date: 20100812
  Transmission Date: 20110219
  Serious: Yes (Death)
  Sender: FDA-Public Use
  Company Number: AT-EISAI INC.-E7273-00176-SPO-AT

PATIENT
  Age: 69 Year
  Sex: Female

DRUGS (20)
  1. TARGRETIN [Suspect]
     Route: 048
     Dates: start: 20091117
  2. TARGRETIN [Suspect]
     Route: 048
     Dates: start: 20090501, end: 20091117
  3. TARGRETIN [Suspect]
     Route: 048
     Dates: start: 20090421, end: 20090501
  4. DIAMICRON [Interacting]
     Route: 048
     Dates: end: 20100413
  5. AEROMUC [Concomitant]
     Route: 048
  6. BERODUALIN [Concomitant]
     Dosage: UNKNOWN
     Route: 055
  7. CIMETIDINE [Concomitant]
  8. CRESTOR [Concomitant]
     Route: 048
  9. DIFLUCAN [Concomitant]
     Route: 048
  10. DILATREND [Concomitant]
     Dosage: UNKNOWN
  11. LEVOTHYROXINE SODIUM [Concomitant]
     Dosage: UNKNOWN
  12. LIPCOR [Concomitant]
     Dosage: UNKNOWN
  13. OMACOR [Concomitant]
     Dosage: UNKNOWN
  14. PAROXAT HEXAL [Concomitant]
     Dosage: UNKNOWN
  15. SYMBICOR [Concomitant]
     Dosage: UNKNOWN
  16. LEVOFLOXACIN [Concomitant]
     Dosage: UNKNOWN
  17. THEOSPIREX [Concomitant]
     Dosage: UNKNOWN
  18. ASPIRIN [Concomitant]
     Dosage: UNKNOWN
  19. URBASON [Concomitant]
     Dosage: UNKNOWN
  20. ALNA RETARD [Concomitant]
     Route: 048

REACTIONS (1)
  - HYPOGLYCAEMIA [None]
